FAERS Safety Report 14789884 (Version 3)
Quarter: 2020Q2

REPORT INFORMATION
  Report Type: Spontaneous
  Country: US (occurrence: US)
  Receive Date: 20180423
  Receipt Date: 20200428
  Transmission Date: 20200713
  Serious: No
  Sender: FDA-Public Use
  Company Number: US-PFIZER INC-2018120847

PATIENT
  Sex: Female

DRUGS (3)
  1. IBRANCE [Suspect]
     Active Substance: PALBOCICLIB
     Indication: BREAST CANCER FEMALE
     Dosage: 125 MG, CYCLIC (1 CAPSULE, DAILY FOR 21 DAYS, THEN OFF FOR 7 DAYS/FOR 3 WEEKS ON AND 1 WEEK OFF)
     Route: 048
     Dates: start: 201610
  2. LETROZOLE. [Suspect]
     Active Substance: LETROZOLE
     Dosage: UNK
  3. IBRANCE [Suspect]
     Active Substance: PALBOCICLIB
     Dosage: 100 MG, CYCLIC (1 CAPSULE, DAILY FOR 21 DAYS, THEN OFF FOR 7 DAYS/FOR 3 WEEKS ON AND 1 WEEK OFF)
     Route: 048

REACTIONS (2)
  - White blood cell count decreased [Unknown]
  - Product dose omission [Unknown]
